FAERS Safety Report 20795930 (Version 4)
Quarter: 2022Q3

REPORT INFORMATION
  Report Type: Spontaneous
  Country: MA (occurrence: MA)
  Receive Date: 20220506
  Receipt Date: 20220926
  Transmission Date: 20221026
  Serious: Yes (Hospitalization, Other)
  Sender: FDA-Public Use
  Company Number: MA-GLAXOSMITHKLINE-MA2022EME066646

PATIENT

DRUGS (2)
  1. LAMICTAL [Suspect]
     Active Substance: LAMOTRIGINE
     Indication: Bipolar disorder
     Dosage: 25 MG
     Dates: start: 20211207
  2. LAMICTAL [Suspect]
     Active Substance: LAMOTRIGINE
     Dosage: 50 MG

REACTIONS (7)
  - Toxic epidermal necrolysis [Unknown]
  - Corneal disorder [Unknown]
  - Drug hypersensitivity [Unknown]
  - Blindness [Unknown]
  - Ocular hyperaemia [Unknown]
  - Corneal scar [Recovered/Resolved]
  - Eye injury [Unknown]
